FAERS Safety Report 8563808-7 (Version None)
Quarter: 2012Q3

REPORT INFORMATION
  Report Type: 
  Country: None (occurrence: None)
  Receive Date: 20120727
  Receipt Date: 20120727
  Transmission Date: 20120928
  Serious: No
  Sender: FDA-Public Use
  Company Number: None

PATIENT
  Age: 15 Year
  Sex: Male
  Weight: 50.8 kg

DRUGS (6)
  1. CHOLECALCIFEROL [Concomitant]
  2. MONTSLUKAST [Concomitant]
  3. PENTASA [Concomitant]
  4. SOMATROPIN [Concomitant]
  5. INFLIXIMAB JANSSEN [Suspect]
     Indication: CROHN'S DISEASE
     Dosage: 250 MG IV
     Route: 042
     Dates: start: 20120401, end: 20120723
  6. MULTI-VITAMIN [Concomitant]

REACTIONS (3)
  - SWELLING FACE [None]
  - VOMITING [None]
  - DYSPNOEA [None]
